FAERS Safety Report 6023905-7 (Version None)
Quarter: 2008Q4

REPORT INFORMATION
  Report Type: 
  Country: None (occurrence: None)
  Receive Date: 20081230
  Receipt Date: 20081217
  Transmission Date: 20090506
  Serious: Yes (Other)
  Sender: FDA-Public Use
  Company Number: JP-ELI_LILLY_AND_COMPANY-JP_050907666

PATIENT
  Age: 68 Year
  Sex: Female

DRUGS (3)
  1. GEMZAR [Suspect]
     Indication: PANCREATIC CARCINOMA NON-RESECTABLE
     Dosage: 1000 MG, WEEKLY (1/W)
     Route: 042
  2. GEMZAR [Suspect]
     Dosage: 1000 MG, BIWEEKLY
     Route: 042
  3. GEMZAR [Suspect]
     Dosage: 1000 MG, MONTHLY (1/M)
     Route: 042

REACTIONS (5)
  - EYELID OEDEMA [None]
  - LARYNGEAL OEDEMA [None]
  - LEUKOPENIA [None]
  - NEUTROPENIA [None]
  - PYREXIA [None]
